FAERS Safety Report 12208388 (Version 1)
Quarter: 2016Q1

REPORT INFORMATION
  Report Type: Report from Study
  Country: US (occurrence: US)
  Receive Date: 20160324
  Receipt Date: 20160324
  Transmission Date: 20160526
  Serious: No
  Sender: FDA-Public Use
  Company Number: GXBR2016US000664

PATIENT
  Age: 42 Year
  Sex: Female
  Weight: 72.3 kg

DRUGS (20)
  1. VALIUM [Concomitant]
     Active Substance: DIAZEPAM
     Indication: ANXIETY
     Dosage: 5 MG, PRIOR TO MRI ONCE PRN
     Route: 048
     Dates: start: 20151228
  2. PRAVASTATIN [Concomitant]
     Active Substance: PRAVASTATIN\PRAVASTATIN SODIUM
     Indication: BLOOD CHOLESTEROL INCREASED
     Dosage: 40 MG, QD
     Route: 048
     Dates: start: 20151228
  3. PARACETAMOL [Concomitant]
     Active Substance: ACETAMINOPHEN
     Indication: HEADACHE
     Dosage: 650 MG, PRN
     Route: 048
     Dates: start: 201512
  4. MELATONIN [Concomitant]
     Active Substance: MELATONIN
     Indication: INSOMNIA
     Dosage: 3 MG, AT HS PRN
     Route: 048
     Dates: start: 20151227
  5. DEXA//DEXAMETHASONE [Concomitant]
     Indication: BRAIN OEDEMA
     Dosage: UNK DF, UNK
     Route: 048
     Dates: start: 20150801
  6. VIMPAT [Concomitant]
     Active Substance: LACOSAMIDE
     Indication: CONVULSION PROPHYLAXIS
     Dosage: 150MG QAM, 250 MG HS
     Dates: start: 20150801
  7. LIDOCAINE W/PRILOCAINE [Concomitant]
     Indication: PAIN PROPHYLAXIS
     Dosage: APPLY TO PORT SITE 1 HOUR PRIOR TO ACCESS
     Route: 061
     Dates: start: 20151228
  8. PANTOPRAZOLE [Concomitant]
     Active Substance: PANTOPRAZOLE SODIUM
     Indication: GASTROOESOPHAGEAL REFLUX DISEASE
     Dosage: 40 MG, QD
     Route: 048
     Dates: start: 20150801
  9. ONDANSETRON [Concomitant]
     Active Substance: ONDANSETRON
     Indication: NAUSEA
     Dosage: 4 MG, PRN
     Route: 048
     Dates: start: 201508
  10. TEMSIROLIMUS [Suspect]
     Active Substance: TEMSIROLIMUS
     Indication: GLIOBLASTOMA
     Dosage: 140 MG, ONCE/SINGLE
     Route: 042
     Dates: start: 20160104, end: 20160104
  11. CLONAZEPAM. [Suspect]
     Active Substance: CLONAZEPAM
     Indication: ANXIETY
     Dosage: 0.25 MG, QHS
     Route: 048
     Dates: start: 20150801, end: 20151227
  12. COLACE [Concomitant]
     Active Substance: DOCUSATE SODIUM
     Indication: CONSTIPATION
     Dosage: 300 MG, QD
     Route: 048
  13. DEPAKOTE [Concomitant]
     Active Substance: DIVALPROEX SODIUM
     Indication: CONVULSION PROPHYLAXIS
     Dosage: 750 MG, BID
     Route: 048
     Dates: start: 20150801
  14. SODIUM CHLORIDE. [Concomitant]
     Active Substance: SODIUM CHLORIDE
     Indication: HYPONATRAEMIA
     Dosage: 1000 MG, BID
     Route: 048
     Dates: start: 20151228
  15. MEPRON//METHYLPREDNISOLONE [Concomitant]
     Indication: PROPHYLAXIS
     Dosage: 750MG/5ML, 10ML QD
     Route: 048
     Dates: start: 20151229
  16. LORAZEPAM ACTAVIS 0.5MG [Suspect]
     Active Substance: LORAZEPAM
     Indication: CONVULSION PROPHYLAXIS
     Dosage: 0.5 MG, PRN
     Route: 048
     Dates: start: 20150801
  17. SERTRALINE [Concomitant]
     Active Substance: SERTRALINE HYDROCHLORIDE
     Indication: DEPRESSION
     Dosage: 100 MG, QD
     Route: 048
     Dates: start: 20051201
  18. SULFAMETHOXAZOLE AND TRIMETHOPRIM [Concomitant]
     Active Substance: SULFAMETHOXAZOLE\TRIMETHOPRIM
     Indication: PROPHYLAXIS
     Dosage: 800/160MG TABLET 3XPER WEEK
     Route: 048
     Dates: start: 20150801, end: 20151228
  19. PERIFOSINE [Suspect]
     Active Substance: PERIFOSINE
     Indication: GLIOBLASTOMA
     Dosage: 140 MG, Q4H
     Dates: start: 20160104, end: 20160105
  20. SENNA [Concomitant]
     Active Substance: SENNA LEAF\SENNOSIDES\SENNOSIDES A AND B
     Indication: CONSTIPATION
     Dosage: 2 DF, QD
     Route: 048

REACTIONS (1)
  - Fall [Recovered/Resolved]

NARRATIVE: CASE EVENT DATE: 20160105
